FAERS Safety Report 24742974 (Version 1)
Quarter: 2024Q4

REPORT INFORMATION
  Report Type: Spontaneous
  Country: CA (occurrence: CA)
  Receive Date: 20241217
  Receipt Date: 20241217
  Transmission Date: 20250115
  Serious: Yes (Hospitalization)
  Sender: MYLAN
  Company Number: CA-MYLANLABS-2024M1112393

PATIENT
  Age: 41 Year
  Sex: Female
  Weight: 112 kg

DRUGS (2)
  1. AMLODIPINE [Suspect]
     Active Substance: AMLODIPINE BESYLATE
     Indication: Hypertension
     Dosage: 10 MILLIGRAM, QD (1 EVERY 1 DAY)
     Route: 048
  2. PERINDOPRIL ERBUMINE [Suspect]
     Active Substance: PERINDOPRIL ERBUMINE
     Indication: Hypertension
     Dosage: 8 MILLIGRAM, QD (1EVERY 1 DAY)
     Route: 048

REACTIONS (3)
  - Lip swelling [Recovered/Resolved]
  - Angioedema [Recovered/Resolved]
  - Hypoaesthesia [Recovered/Resolved]
